FAERS Safety Report 11031380 (Version 3)
Quarter: 2015Q2

REPORT INFORMATION
  Report Type: Spontaneous
  Country: US (occurrence: US)
  Receive Date: 20150415
  Receipt Date: 20150504
  Transmission Date: 20150821
  Serious: No
  Sender: FDA-Public Use
  Company Number: US-PFIZER INC-2015124446

PATIENT
  Age: 75 Year
  Sex: Female

DRUGS (1)
  1. SUTENT [Suspect]
     Active Substance: SUNITINIB MALATE
     Indication: RENAL CANCER
     Dosage: 50 MG, DAILY (28 DAYS ON / 14 DAYS OFF)
     Dates: start: 20150208, end: 20150326

REACTIONS (2)
  - Hepatic enzyme increased [Recovering/Resolving]
  - Thyroid disorder [Recovering/Resolving]
